FAERS Safety Report 12078648 (Version 2)
Quarter: 2016Q4

REPORT INFORMATION
  Report Type: Spontaneous
  Country: US (occurrence: US)
  Receive Date: 20160216
  Receipt Date: 20161104
  Transmission Date: 20170206
  Serious: No
  Sender: FDA-Public Use
  Company Number: US-ASTRAZENECA-2016SE13032

PATIENT
  Sex: Female

DRUGS (1)
  1. TUDORZA PRESSAIR [Suspect]
     Active Substance: ACLIDINIUM BROMIDE
     Dosage: 400MCG  INHALATION, ONE PUFF TWICE A DAY
     Route: 055
     Dates: start: 20160127

REACTIONS (4)
  - Visual acuity reduced [Unknown]
  - Intentional device misuse [Unknown]
  - Product quality issue [Unknown]
  - Mental impairment [Unknown]
